FAERS Safety Report 5517835-4 (Version None)
Quarter: 2007Q4

REPORT INFORMATION
  Report Type: 
  Country: None (occurrence: None)
  Receive Date: 20071113
  Receipt Date: 20071030
  Transmission Date: 20080405
  Serious: Yes (Hospitalization, Other)
  Sender: FDA-Public Use
  Company Number: 42333

PATIENT
  Age: 79 Year
  Sex: Female
  Weight: 45 kg

DRUGS (1)
  1. AMIODARONE HCL [Suspect]
     Indication: VENTRICULAR TACHYCARDIA
     Dates: start: 20071016

REACTIONS (1)
  - CONVULSION [None]
